FAERS Safety Report 18437085 (Version 1)
Quarter: 2020Q4

REPORT INFORMATION
  Report Type: Spontaneous
  Country: US (occurrence: US)
  Receive Date: 20201028
  Receipt Date: 20201028
  Transmission Date: 20210114
  Serious: Yes (Disabling, Congenital Anomaly, Other)
  Sender: FDA-Public Use
  Company Number: US-PURDUE-USA-2020-0170444

PATIENT
  Sex: Female
  Weight: 3.48 kg

DRUGS (2)
  1. OXYCODONE/ ACETAMINOPHEN TABLETS [Suspect]
     Active Substance: ACETAMINOPHEN\OXYCODONE HYDROCHLORIDE
     Indication: PRODUCT USED FOR UNKNOWN INDICATION
     Dosage: UNK
     Route: 064
  2. PREVACID [Concomitant]
     Active Substance: LANSOPRAZOLE
     Indication: PRODUCT USED FOR UNKNOWN INDICATION
     Dosage: UNK
     Route: 065

REACTIONS (8)
  - Drug withdrawal syndrome neonatal [Unknown]
  - Gastrooesophageal reflux disease [Unknown]
  - Developmental delay [Unknown]
  - Growth retardation [Unknown]
  - Unevaluable event [Unknown]
  - Congenital anomaly [Unknown]
  - Learning disability [Unknown]
  - Pulmonary valve stenosis [Unknown]
